FAERS Safety Report 10298114 (Version 3)
Quarter: 2020Q1

REPORT INFORMATION
  Report Type: Spontaneous
  Country: US (occurrence: US)
  Receive Date: 20140711
  Receipt Date: 20200123
  Transmission Date: 20200409
  Serious: Yes (Death, Hospitalization, Other)
  Sender: FDA-Public Use
  Company Number: US-SA-2014SA047646

PATIENT
  Age: 12 Month
  Sex: Female
  Weight: 7.98 kg

DRUGS (3)
  1. ARALEN [Suspect]
     Active Substance: CHLOROQUINE PHOSPHATE
     Indication: PRODUCT USED FOR UNKNOWN INDICATION
     Dosage: 300 MG,1X
     Route: 048
  2. ACETYLSALICYLIC ACID [Concomitant]
     Active Substance: ASPIRIN
     Indication: DIARRHOEA
     Dosage: UNK
  3. ACETYLSALICYLIC ACID [Concomitant]
     Active Substance: ASPIRIN
     Indication: PYREXIA

REACTIONS (23)
  - Blood potassium increased [Unknown]
  - Amylase increased [Unknown]
  - Hypotension [Unknown]
  - Accidental exposure to product by child [Fatal]
  - Brain oedema [Unknown]
  - Brain herniation [Unknown]
  - Pupils unequal [Unknown]
  - Hyperglycaemia [Unknown]
  - Blood sodium decreased [Unknown]
  - Brain death [Fatal]
  - Accidental overdose [Fatal]
  - Body temperature decreased [Unknown]
  - Pupillary light reflex tests abnormal [Unknown]
  - Electrocardiogram QRS complex prolonged [Unknown]
  - Blood creatinine increased [Unknown]
  - Blood urea increased [Unknown]
  - Bradycardia [Unknown]
  - Apnoea [Unknown]
  - Sinus tachycardia [Unknown]
  - Blood alkaline phosphatase increased [Unknown]
  - Seizure [Unknown]
  - Urine output decreased [Unknown]
  - Unresponsive to stimuli [Unknown]
